FAERS Safety Report 8277581-3 (Version None)
Quarter: 2012Q2

REPORT INFORMATION
  Report Type: 
  Country: None (occurrence: None)
  Receive Date: 20120412
  Receipt Date: 20120403
  Transmission Date: 20120825
  Serious: Yes (Other)
  Sender: FDA-Public Use
  Company Number: BR-ASTRAZENECA-2012SE22429

PATIENT
  Age: 53 Year
  Sex: Male
  Weight: 73 kg

DRUGS (6)
  1. ASPIRIN [Concomitant]
     Route: 048
     Dates: start: 20111001
  2. CORDAPTIVE [Concomitant]
     Route: 048
     Dates: start: 20111001
  3. CRESTOR [Suspect]
     Indication: BLOOD CHOLESTEROL INCREASED
     Route: 048
     Dates: start: 20111001
  4. INDAPAMIDE [Concomitant]
     Route: 048
     Dates: start: 20111001
  5. TORLOS [Concomitant]
     Route: 048
     Dates: start: 20111001
  6. CLOPIDOGREL [Concomitant]
     Indication: THROMBOSIS PROPHYLAXIS
     Route: 048
     Dates: start: 20111001, end: 20120401

REACTIONS (1)
  - ANGINA PECTORIS [None]
